FAERS Safety Report 21255765 (Version 1)
Quarter: 2022Q3

REPORT INFORMATION
  Report Type: Report from Study
  Country: US (occurrence: US)
  Receive Date: 20220825
  Receipt Date: 20220825
  Transmission Date: 20221027
  Serious: Yes (Hospitalization)
  Sender: FDA-Public Use
  Company Number: US-HLS-202201645

PATIENT
  Age: 65 Year
  Sex: Female

DRUGS (1)
  1. CLOZAPINE [Suspect]
     Active Substance: CLOZAPINE
     Indication: Product used for unknown indication
     Route: 065

REACTIONS (11)
  - Chronic obstructive pulmonary disease [Unknown]
  - Cellulitis [Unknown]
  - Dysphagia [Unknown]
  - Oedema [Unknown]
  - Muscular weakness [Unknown]
  - Peripheral vascular disorder [Unknown]
  - Secondary hypertension [Unknown]
  - Type 2 diabetes mellitus [Unknown]
  - Coordination abnormal [Unknown]
  - Balance disorder [Unknown]
  - Asthenia [Unknown]

NARRATIVE: CASE EVENT DATE: 20210519
